FAERS Safety Report 11479123 (Version 1)
Quarter: 2015Q3

REPORT INFORMATION
  Report Type: Spontaneous
  Country: US (occurrence: US)
  Receive Date: 20150909
  Receipt Date: 20150909
  Transmission Date: 20151125
  Serious: No
  Sender: FDA-Public Use
  Company Number: US-JAZZ-2014-US-013200

PATIENT
  Age: 72 Year
  Sex: Male
  Weight: 93.87 kg

DRUGS (2)
  1. XYREM [Suspect]
     Active Substance: SODIUM OXYBATE
     Indication: SLEEP DISORDER
  2. XYREM [Suspect]
     Active Substance: SODIUM OXYBATE
     Indication: FIBROMYALGIA
     Dosage: 3 G, BID
     Route: 048
     Dates: start: 2008

REACTIONS (4)
  - Tooth extraction [Recovered/Resolved]
  - Product use issue [Unknown]
  - Stress [Unknown]
  - Amnesia [Unknown]

NARRATIVE: CASE EVENT DATE: 201404
